FAERS Safety Report 11123289 (Version 3)
Quarter: 2015Q2

REPORT INFORMATION
  Report Type: Spontaneous
  Country: US (occurrence: US)
  Receive Date: 20150519
  Receipt Date: 20150603
  Transmission Date: 20150821
  Serious: No
  Sender: FDA-Public Use
  Company Number: US-GLAXOSMITHKLINE-US2015GSK067588

PATIENT
  Sex: Male

DRUGS (2)
  1. ROPINIROLE PROLONGED-RELEASE TABLET [Suspect]
     Active Substance: ROPINIROLE
     Indication: PARKINSON^S DISEASE
     Dosage: 8 MG, U
     Route: 065
     Dates: start: 2011
  2. AVODART [Concomitant]
     Active Substance: DUTASTERIDE
     Dosage: 0.5 MG, UNK

REACTIONS (4)
  - Nausea [Unknown]
  - Drug intolerance [Unknown]
  - Food intolerance [Unknown]
  - Abdominal discomfort [Unknown]
